FAERS Safety Report 9230225 (Version 1)
Quarter: 2013Q2

REPORT INFORMATION
  Report Type: Spontaneous
  Country: IT (occurrence: IT)
  Receive Date: 20130415
  Receipt Date: 20130415
  Transmission Date: 20140414
  Serious: Yes (Other)
  Sender: FDA-Public Use
  Company Number: IT-MILLENNIUM PHARMACEUTICALS, INC.-2013-02709

PATIENT
  Sex: 0

DRUGS (4)
  1. VELCADE [Suspect]
     Indication: PLASMA CELL MYELOMA
     Dosage: 1.3 MG/M2, UNK
     Route: 042
  2. DEXAMETHASONE [Suspect]
     Indication: PLASMA CELL MYELOMA
     Dosage: 40 MG, UNK
     Route: 048
  3. DEXAMETHASONE [Suspect]
     Dosage: 20 MG, UNK
     Route: 048
  4. DOXORUBICIN [Suspect]
     Indication: PLASMA CELL MYELOMA
     Dosage: 30 MG/M2, UNK
     Route: 065

REACTIONS (1)
  - Gastrointestinal toxicity [Unknown]
